FAERS Safety Report 10386242 (Version 1)
Quarter: 2014Q3

REPORT INFORMATION
  Report Type: Spontaneous
  Country: GB (occurrence: GB)
  Receive Date: 20140815
  Receipt Date: 20140815
  Transmission Date: 20150326
  Serious: Yes (Other)
  Sender: FDA-Public Use
  Company Number: PHHY2014GB100114

PATIENT
  Age: 34 Year
  Sex: Male

DRUGS (4)
  1. CLOZAPINE. [Suspect]
     Active Substance: CLOZAPINE
     Indication: PSYCHOTIC DISORDER
     Dosage: 400 MG, BID
  2. RISPERIDONE. [Concomitant]
     Active Substance: RISPERIDONE
  3. CLOZAPINE. [Suspect]
     Active Substance: CLOZAPINE
     Dosage: 600 MG, DAILY
  4. CLOZAPINE. [Suspect]
     Active Substance: CLOZAPINE
     Dosage: 300 MG, DAILY

REACTIONS (6)
  - Hypotension [Recovered/Resolved]
  - Sinus tachycardia [Recovering/Resolving]
  - Dizziness [Recovered/Resolved]
  - Palpitations [Unknown]
  - Systolic dysfunction [Unknown]
  - Tachycardia [Recovering/Resolving]
